FAERS Safety Report 9687982 (Version 2)
Quarter: 2013Q4

REPORT INFORMATION
  Report Type: Spontaneous
  Country: AT (occurrence: AT)
  Receive Date: 20131114
  Receipt Date: 20131114
  Transmission Date: 20140711
  Serious: Yes (Other)
  Sender: FDA-Public Use
  Company Number: PHHY2013AT115127

PATIENT
  Sex: Female

DRUGS (4)
  1. GILENYA [Suspect]
     Dosage: 0.5 MG, UNK
     Route: 048
     Dates: start: 20130328
  2. SERTRALINE [Concomitant]
     Indication: ANXIETY
     Dosage: 50 MG, QD
     Route: 048
     Dates: start: 20131004
  3. LYRICA [Concomitant]
     Indication: ANXIETY
     Dosage: 75 MG, BID
     Route: 048
     Dates: start: 20131004
  4. LIORESAL [Concomitant]
     Dosage: 2 DF, QD
     Route: 048
     Dates: start: 2010

REACTIONS (1)
  - Panic attack [Recovering/Resolving]
